FAERS Safety Report 15681527 (Version 1)
Quarter: 2018Q4

REPORT INFORMATION
  Report Type: Spontaneous
  Country: US (occurrence: US)
  Receive Date: 20181203
  Receipt Date: 20181203
  Transmission Date: 20190205
  Serious: No
  Sender: FDA-Public Use
  Company Number: US-SA-2018SA136462

PATIENT
  Age: 60 Year
  Sex: Female

DRUGS (1)
  1. PRALUENT [Suspect]
     Active Substance: ALIROCUMAB
     Dosage: 75 MG,QOW
     Route: 058
     Dates: start: 201803

REACTIONS (9)
  - Injection site reaction [Recovering/Resolving]
  - Hypoaesthesia [Unknown]
  - Flushing [Recovered/Resolved]
  - Eye swelling [Recovered/Resolved]
  - Injection site bruising [Recovered/Resolved]
  - Influenza like illness [Unknown]
  - Injection site pain [Unknown]
  - Injection site pruritus [Recovered/Resolved]
  - Oropharyngeal pain [Unknown]
